FAERS Safety Report 19010832 (Version 1)
Quarter: 2021Q1

REPORT INFORMATION
  Report Type: Spontaneous
  Country: US (occurrence: US)
  Receive Date: 20210316
  Receipt Date: 20210316
  Transmission Date: 20210420
  Serious: Yes (Death)
  Sender: FDA-Public Use
  Company Number: US-PFIZER INC-03H-163-0238279-00

PATIENT
  Age: 24 Month
  Sex: Male

DRUGS (2)
  1. BUPIVACAINE HCL [Suspect]
     Active Substance: BUPIVACAINE HYDROCHLORIDE
     Indication: PAIN MANAGEMENT
     Dosage: FREQ: NI
  2. HYDROMORPHONE HYDROCHLORIDE. [Suspect]
     Active Substance: HYDROMORPHONE HYDROCHLORIDE

REACTIONS (5)
  - Incorrect route of product administration [Fatal]
  - Cardiac arrest [Fatal]
  - Injury [Fatal]
  - Therapeutic response increased [Fatal]
  - Respiratory depression [Fatal]
